FAERS Safety Report 7215922-6 (Version None)
Quarter: 2011Q1

REPORT INFORMATION
  Report Type: 
  Country: None (occurrence: None)
  Receive Date: 20110104
  Receipt Date: 20110104
  Transmission Date: 20110831
  Serious: Yes (Hospitalization)
  Sender: FDA-Public Use
  Company Number: None

PATIENT
  Age: 5 Month
  Sex: Female
  Weight: 6.3504 kg

DRUGS (1)
  1. HYLAND'S TEETHING TABLETS INFANT HYLAND'S INC [Suspect]
     Indication: TEETHING
     Dosage: TWO TABLETS TWICE DAILY PO
     Route: 048
     Dates: start: 20101015, end: 20101201

REACTIONS (5)
  - VOMITING [None]
  - CONVULSION [None]
  - VISUAL IMPAIRMENT [None]
  - STRABISMUS [None]
  - DYSPNOEA [None]
